FAERS Safety Report 9328732 (Version 2)
Quarter: 2013Q4

REPORT INFORMATION
  Report Type: Spontaneous
  Country: US (occurrence: US)
  Receive Date: 20130604
  Receipt Date: 20131112
  Transmission Date: 20140711
  Serious: Yes (Hospitalization)
  Sender: FDA-Public Use
  Company Number: US-BAYER-2013-068010

PATIENT
  Age: 20 Year
  Sex: Female
  Weight: 111.57 kg

DRUGS (3)
  1. YASMIN [Suspect]
     Indication: POLYCYSTIC OVARIES
     Dosage: UNK
     Dates: start: 200205, end: 20021207
  2. ADVIL [Concomitant]
  3. VICODIN ES [Concomitant]

REACTIONS (10)
  - Deep vein thrombosis [None]
  - Pain [None]
  - Injury [None]
  - General physical health deterioration [None]
  - Anxiety [None]
  - Emotional distress [None]
  - Pain in extremity [None]
  - Local swelling [None]
  - Muscle spasms [None]
  - Off label use [None]
